FAERS Safety Report 4396620-3 (Version None)
Quarter: 2004Q3

REPORT INFORMATION
  Report Type: 
  Country: None (occurrence: None)
  Receive Date: 20040713
  Receipt Date: 20040713
  Transmission Date: 20050211
  Serious: Yes (Hospitalization)
  Sender: FDA-Public Use
  Company Number: None

PATIENT
  Age: 56 Year
  Sex: Female
  Weight: 62.1428 kg

DRUGS (2)
  1. GEMCITABINE [Suspect]
     Indication: PANCREATIC CARCINOMA
     Dosage: 1298 MG WEEKLY IV
     Route: 042
     Dates: start: 20040623, end: 20040630
  2. CELEBREX [Suspect]
     Indication: PANCREATIC CARCINOMA
     Dosage: 400 MG BID PO
     Route: 048
     Dates: start: 20040623, end: 20040626

REACTIONS (4)
  - INTESTINAL DILATATION [None]
  - NAUSEA [None]
  - PANCREATIC MASS [None]
  - VOMITING [None]
